FAERS Safety Report 10167268 (Version 3)
Quarter: 2014Q3

REPORT INFORMATION
  Report Type: Report from Study
  Country: VE (occurrence: VE)
  Receive Date: 20140512
  Receipt Date: 20140827
  Transmission Date: 20150326
  Serious: Yes (Death, Other)
  Sender: FDA-Public Use
  Company Number: VE-ABBVIE-13P-178-1095558-00

PATIENT
  Age: 71 Year
  Sex: Male

DRUGS (1)
  1. HUMIRA [Suspect]
     Active Substance: ADALIMUMAB
     Indication: PSORIASIS
     Route: 058
     Dates: start: 20120831, end: 201212

REACTIONS (3)
  - Tuberculosis [Fatal]
  - Decreased appetite [Recovered/Resolved]
  - Pleural effusion [Fatal]

NARRATIVE: CASE EVENT DATE: 201209
